FAERS Safety Report 6208602-7 (Version None)
Quarter: 2009Q2

REPORT INFORMATION
  Report Type: 
  Country: None (occurrence: None)
  Receive Date: 20090522
  Receipt Date: 20090304
  Transmission Date: 20091009
  Serious: No
  Sender: FDA-Public Use
  Company Number: 8043704

PATIENT
  Age: 52 Year
  Sex: Female
  Weight: 68 kg

DRUGS (11)
  1. CIMZIA [Suspect]
     Indication: CROHN'S DISEASE
     Dosage: 400 MG SC
     Route: 058
     Dates: start: 20090225
  2. LEVOTHYROXINE SODIUM [Concomitant]
  3. EFFEXOR XR [Concomitant]
  4. LASIX [Concomitant]
  5. KLONOPIN [Concomitant]
  6. LUNESTA [Concomitant]
  7. ABILIFY [Concomitant]
  8. LOMOTIL [Concomitant]
  9. DEPO-ESTRADIOL [Concomitant]
  10. DEPO-TESTOSTERONE [Concomitant]
  11. TOPAMAX [Concomitant]

REACTIONS (1)
  - ASTHENIA [None]
